FAERS Safety Report 11654772 (Version 1)
Quarter: 2015Q4

REPORT INFORMATION
  Report Type: Spontaneous
  Country: US (occurrence: None)
  Receive Date: 20151022
  Receipt Date: 20151022
  Transmission Date: 20160304
  Serious: Yes (Other)
  Sender: FDA-Public Use
  Company Number: None

PATIENT
  Age: 34 Year
  Sex: Female

DRUGS (1)
  1. CIMZIA [Suspect]
     Active Substance: CERTOLIZUMAB PEGOL
     Indication: CROHN^S DISEASE
     Dosage: EVERY 14 DAYS
     Route: 058
     Dates: start: 20150521, end: 20150920

REACTIONS (3)
  - Malignant melanoma [None]
  - Precancerous cells present [None]
  - Cervix disorder [None]

NARRATIVE: CASE EVENT DATE: 20151014
